FAERS Safety Report 7897059-6 (Version None)
Quarter: 2011Q4

REPORT INFORMATION
  Report Type: 
  Country: None (occurrence: None)
  Receive Date: 20111107
  Receipt Date: 20111024
  Transmission Date: 20120403
  Serious: Yes (Hospitalization, Other)
  Sender: FDA-Public Use
  Company Number: US-ELI_LILLY_AND_COMPANY-US201012001406

PATIENT
  Sex: Female

DRUGS (6)
  1. NAMENDA [Concomitant]
  2. FORTEO [Suspect]
     Indication: OSTEOPOROSIS
     Dosage: 20 UG, DAILY (1/D)
  3. FORTEO [Suspect]
     Dosage: 20 UG, QD
  4. SYNTHROID [Concomitant]
  5. FORTEO [Suspect]
     Dosage: 20 UG, QD
  6. COREG [Concomitant]

REACTIONS (5)
  - VENOUS INJURY [None]
  - FALL [None]
  - CARDIAC PACEMAKER INSERTION [None]
  - INJECTION SITE HAEMATOMA [None]
  - DEMENTIA [None]
